FAERS Safety Report 9219554 (Version 2)
Quarter: 2013Q2

REPORT INFORMATION
  Report Type: Report from Study
  Country: DE (occurrence: DE)
  Receive Date: 20130409
  Receipt Date: 20130502
  Transmission Date: 20140414
  Serious: Yes (Hospitalization)
  Sender: FDA-Public Use
  Company Number: DE-UCBSA-082301

PATIENT
  Age: 54 Year
  Sex: Female

DRUGS (7)
  1. VIMPAT [Suspect]
     Indication: EPILEPSY
     Dosage: DAILY DOSE: 50 MG
     Dates: start: 20081217
  2. VIMPAT [Suspect]
     Indication: EPILEPSY
     Dosage: DAILY DOSE 350 MG
     Dates: end: 2009
  3. VIMPAT [Suspect]
     Indication: EPILEPSY
     Dosage: DAILY DOSE:400 MG
     Dates: start: 2009, end: 2009
  4. VIMPAT [Suspect]
     Indication: EPILEPSY
     Dosage: 350 MG
     Dates: start: 2009
  5. LAMOTRIGINE [Concomitant]
     Indication: EPILEPSY
     Dosage: DAILY DOSE: 100 MG
     Dates: end: 2009
  6. LAMOTRIGINE [Concomitant]
     Indication: EPILEPSY
     Dosage: 250 MG/DAY
     Dates: start: 2009
  7. OXCARBAZEPINE [Concomitant]
     Indication: EPILEPSY
     Dosage: DAILY DOSE:1050 MG

REACTIONS (2)
  - Partial seizures [Unknown]
  - Grand mal convulsion [Unknown]
